FAERS Safety Report 9241570 (Version 1)
Quarter: 2013Q2

REPORT INFORMATION
  Report Type: Spontaneous
  Country: HR (occurrence: HR)
  Receive Date: 20130419
  Receipt Date: 20130419
  Transmission Date: 20140414
  Serious: Yes (Other)
  Sender: FDA-Public Use
  Company Number: HR-BAYER-2013-048881

PATIENT
  Age: 62 Year
  Sex: Female

DRUGS (5)
  1. AVELOX 400 MG FILM COATED TABLETS [Suspect]
     Indication: BRONCHITIS
     Dosage: 400 MG, QD
     Route: 048
     Dates: start: 20130306, end: 20130306
  2. SANVAL [Concomitant]
     Indication: INSOMNIA
     Dosage: 5 MG, QD
     Route: 048
     Dates: start: 2010
  3. NOVOMIX [INSULIN ASPART,INSULIN ASPART PROTAMINE] [Concomitant]
     Indication: TYPE 2 DIABETES MELLITUS
     Dosage: 42 IU, QD
     Route: 058
     Dates: start: 2010
  4. SORTIS [Concomitant]
     Indication: TYPE 2 DIABETES MELLITUS
     Dosage: 20 MG, QD
     Route: 048
     Dates: start: 2010
  5. LOSARTAN [Concomitant]
     Indication: ESSENTIAL HYPERTENSION
     Dosage: 1 DF, QD (12.5 MG/ 50 MG)
     Dates: start: 2009

REACTIONS (2)
  - Anaphylactic reaction [Recovered/Resolved]
  - Choking [Recovered/Resolved]
